FAERS Safety Report 7774951-4 (Version None)
Quarter: 2011Q3

REPORT INFORMATION
  Report Type: 
  Country: None (occurrence: None)
  Receive Date: 20110923
  Receipt Date: 20110811
  Transmission Date: 20111222
  Serious: Yes (Life-Threatening, Hospitalization)
  Sender: FDA-Public Use
  Company Number: PHHO2011DE10960

PATIENT
  Sex: Female
  Weight: 72 kg

DRUGS (12)
  1. GLEEVEC [Suspect]
     Indication: PULMONARY ARTERIAL HYPERTENSION
     Dosage: 400 MG, QD
     Route: 048
     Dates: start: 20110416, end: 20110626
  2. TORSEMIDE [Concomitant]
     Indication: RIGHT VENTRICULAR FAILURE
     Dosage: 10 MG, BID
     Dates: end: 20110626
  3. LIVOCAB [Concomitant]
     Indication: NASAL CONGESTION
     Dosage: 0.5%,BID
  4. OMEPRAZOLE [Concomitant]
     Indication: GASTRIC DISORDER
     Dosage: 40 MG, QD
  5. ALLOPURINOL [Concomitant]
     Indication: BLOOD URIC ACID INCREASED
     Dosage: 300 MG, QD
     Dates: end: 20110626
  6. IBUPROFEN [Suspect]
     Indication: NECK PAIN
     Dosage: 600 MG, QD
  7. LEVOTHYROXINE SODIUM [Concomitant]
     Indication: THYROID DISORDER
     Dosage: 175 MG, QD
     Dates: start: 19950101, end: 20110626
  8. BROMAZEPAM [Concomitant]
     Indication: SLEEP DISORDER
     Dosage: 0.15 MG
     Route: 048
  9. REVATIO [Concomitant]
     Indication: PULMONARY HYPERTENSION
     Dosage: 20 MG, TID
     Dates: start: 20061012, end: 20110626
  10. SYMBICORT [Concomitant]
     Indication: CHRONIC OBSTRUCTIVE PULMONARY DISEASE
     Dosage: UNK,MG,BID
  11. MARCUMAR [Suspect]
     Indication: PULMONARY ARTERIAL HYPERTENSION
     Dosage: UNK
     Route: 048
     Dates: start: 20060101
  12. SPIRONOLACTONE [Concomitant]
     Indication: DIURETIC THERAPY
     Dosage: 50 MG, QD

REACTIONS (1)
  - CONCOMITANT DISEASE PROGRESSION [None]
